FAERS Safety Report 23322136 (Version 1)
Quarter: 2023Q4

REPORT INFORMATION
  Report Type: Report from Study
  Country: US (occurrence: None)
  Receive Date: 20231220
  Receipt Date: 20231220
  Transmission Date: 20240110
  Serious: Yes (Other)
  Sender: FDA-Public Use
  Company Number: 2023A281828

PATIENT
  Age: 58 Year
  Sex: Female
  Weight: 72.6 kg

DRUGS (18)
  1. TEZSPIRE [Suspect]
     Active Substance: TEZEPELUMAB-EKKO
  2. SYMBICORT [Suspect]
     Active Substance: BUDESONIDE\FORMOTEROL FUMARATE DIHYDRATE
     Dosage: 160/4.5 UG, DOSE AND FREQUENCY UNKNOWN UNKNOWN
     Route: 055
  3. BUDESONIDE [Suspect]
     Active Substance: BUDESONIDE
     Indication: Asthma
     Route: 055
     Dates: start: 20220518
  4. ALBUTEROL SULFATE [Concomitant]
     Active Substance: ALBUTEROL SULFATE
     Indication: Asthma
     Route: 055
  5. IPRATROPLUM-ALBUTEROL [Concomitant]
     Indication: Asthma
     Dates: start: 20220303
  6. PREDNISONE [Concomitant]
     Active Substance: PREDNISONE
     Indication: Asthma
     Route: 048
     Dates: start: 20220407, end: 20230111
  7. PREDNISONE [Concomitant]
     Active Substance: PREDNISONE
     Indication: Chronic sinusitis
     Route: 048
     Dates: start: 20220407, end: 20230111
  8. PREDNISONE [Concomitant]
     Active Substance: PREDNISONE
     Indication: Asthma
     Route: 048
     Dates: start: 20220202, end: 20220907
  9. PREDNISONE [Concomitant]
     Active Substance: PREDNISONE
     Indication: Chronic sinusitis
     Route: 048
     Dates: start: 20220202, end: 20220907
  10. PREDNISONE [Concomitant]
     Active Substance: PREDNISONE
     Indication: Asthma
     Route: 048
  11. PREDNISONE [Concomitant]
     Active Substance: PREDNISONE
     Indication: Chronic sinusitis
     Route: 048
  12. DOXYCYCLINE HYCLATE [Concomitant]
     Active Substance: DOXYCYCLINE HYCLATE
     Indication: Chronic sinusitis
     Route: 048
     Dates: start: 20220202
  13. MOXIFLOXACIN [Concomitant]
     Active Substance: MOXIFLOXACIN
     Indication: Chronic sinusitis
     Route: 048
  14. SPIRIVA RESPIMAT [Concomitant]
     Active Substance: TIOTROPIUM BROMIDE
     Indication: Chronic obstructive pulmonary disease
     Route: 055
     Dates: start: 20220407
  15. THEOPHYLLINE [Concomitant]
     Active Substance: THEOPHYLLINE
     Indication: Chronic obstructive pulmonary disease
     Route: 048
     Dates: start: 20220407
  16. MONTELUKAST SODIUM [Concomitant]
     Active Substance: MONTELUKAST SODIUM
     Indication: Rhinitis allergic
     Route: 048
     Dates: start: 20220303
  17. AZITHROMYCIN [Concomitant]
     Active Substance: AZITHROMYCIN
     Route: 048
  18. DIFLUCAN [Concomitant]
     Active Substance: FLUCONAZOLE
     Dosage: 1.0DF ONCE/SINGLE ADMINISTRATION
     Route: 048

REACTIONS (18)
  - Upper airway obstruction [Unknown]
  - Decreased appetite [Unknown]
  - Chills [Unknown]
  - Cough [Unknown]
  - Fatigue [Unknown]
  - Pyrexia [Unknown]
  - Snoring [Unknown]
  - Somnolence [Unknown]
  - Productive cough [Unknown]
  - Joint swelling [Unknown]
  - Hyperhidrosis [Unknown]
  - Weight decreased [Unknown]
  - Musculoskeletal chest pain [Unknown]
  - Dyspnoea exertional [Unknown]
  - Dyspnoea [Unknown]
  - Dyspnoea paroxysmal nocturnal [Unknown]
  - Drug ineffective [Unknown]
  - Oedema [Unknown]
